FAERS Safety Report 7528770 (Version 3)
Quarter: 2019Q2

REPORT INFORMATION
  Report Type: Report from Study
  Country: JP (occurrence: JP)
  Receive Date: 20100805
  Receipt Date: 20190522
  Transmission Date: 20190711
  Serious: Yes (Hospitalization, Other)
  Sender: FDA-Public Use
  Company Number: JP-ALEXION-A201000893

PATIENT

DRUGS (16)
  1. PRIMOBOLAN                         /00044802/ [Concomitant]
     Dosage: 20 MG, BID
     Route: 048
     Dates: start: 20100614, end: 20100702
  2. SOLIRIS [Suspect]
     Active Substance: ECULIZUMAB
     Indication: PAROXYSMAL NOCTURNAL HAEMOGLOBINURIA
     Dosage: 600 MG, QW
     Route: 042
     Dates: start: 20100308, end: 20100329
  3. PRIMOBOLAN                         /00044802/ [Concomitant]
     Indication: PROPHYLAXIS
     Dosage: 20 MG, BID
     Route: 048
     Dates: start: 20100308, end: 20100406
  4. PRIMOBOLAN                         /00044802/ [Concomitant]
     Dosage: 40 MG, BID
     Route: 048
     Dates: start: 20100712, end: 20100713
  5. PREDNISOLONE. [Concomitant]
     Active Substance: PREDNISOLONE
     Dosage: 20 MG, QD
     Route: 048
     Dates: start: 20100727, end: 20100802
  6. SOLIRIS [Suspect]
     Active Substance: ECULIZUMAB
     Dosage: 900 MG, Q2W
     Route: 042
     Dates: start: 20100405, end: 20100802
  7. PREDNISOLONE. [Concomitant]
     Active Substance: PREDNISOLONE
     Dosage: 20 MG, QD
     Route: 048
     Dates: start: 20100712, end: 20100713
  8. PRIMOBOLAN                         /00044802/ [Concomitant]
     Dosage: 20 MG, BID
     Route: 048
     Dates: start: 20100703, end: 20100711
  9. PRIMOBOLAN                         /00044802/ [Concomitant]
     Dosage: 20 MG, BID
     Route: 048
     Dates: start: 20100714, end: 20100726
  10. PREDNISOLONE. [Concomitant]
     Active Substance: PREDNISOLONE
     Indication: PROPHYLAXIS
     Dosage: 10 MG, QD
     Route: 048
     Dates: start: 20100308, end: 20100406
  11. SOLIRIS [Suspect]
     Active Substance: ECULIZUMAB
     Dosage: 900 MG, Q2W
     Route: 042
  12. PRIMOBOLAN                         /00044802/ [Concomitant]
     Dosage: 40 MG, BID
     Route: 048
     Dates: start: 20100726, end: 20100804
  13. PREDNISOLONE. [Concomitant]
     Active Substance: PREDNISOLONE
     Dosage: 5 MG, QD
     Route: 048
     Dates: start: 20100517, end: 20100613
  14. PREDNISOLONE. [Concomitant]
     Active Substance: PREDNISOLONE
     Dosage: 15 MG, QD
     Route: 048
     Dates: start: 20100614, end: 20100615
  15. PREDNISOLONE. [Concomitant]
     Active Substance: PREDNISOLONE
     Dosage: 10 MG, QD
     Route: 048
     Dates: start: 20100616, end: 20100711
  16. PREDNISOLONE. [Concomitant]
     Active Substance: PREDNISOLONE
     Dosage: 10 MG, QD
     Route: 048
     Dates: start: 20100714, end: 20100726

REACTIONS (2)
  - Herpes zoster [Recovered/Resolved]
  - Haemolysis [Unknown]

NARRATIVE: CASE EVENT DATE: 20100720
